FAERS Safety Report 5706052-0 (Version None)
Quarter: 2008Q2

REPORT INFORMATION
  Report Type: 
  Country: None (occurrence: None)
  Receive Date: 20080415
  Receipt Date: 20080403
  Transmission Date: 20081010
  Serious: Yes (Other)
  Sender: FDA-Public Use
  Company Number: US-PFIZER INC-2008014338

PATIENT
  Sex: Male
  Weight: 113.63 kg

DRUGS (6)
  1. CHANTIX [Suspect]
     Indication: SMOKING CESSATION THERAPY
     Dates: start: 20080121, end: 20080301
  2. AMOXICILLIN [Concomitant]
  3. ACETYLSALICYLIC ACID SRT [Concomitant]
  4. VITAMINS [Concomitant]
  5. VICODIN [Concomitant]
     Indication: BACK PAIN
  6. DARVOCET [Concomitant]
     Indication: BACK PAIN

REACTIONS (5)
  - DIZZINESS [None]
  - HEADACHE [None]
  - INSOMNIA [None]
  - LIBIDO DECREASED [None]
  - LOSS OF CONSCIOUSNESS [None]
